FAERS Safety Report 14346925 (Version 1)
Quarter: 2018Q1

REPORT INFORMATION
  Report Type: Spontaneous
  Country: US (occurrence: US)
  Receive Date: 20180101
  Receipt Date: 20180101
  Transmission Date: 20180509
  Serious: No
  Sender: FDA-Public Use
  Company Number: None

PATIENT
  Age: 66 Year
  Sex: Male

DRUGS (1)
  1. HARVONI [Suspect]
     Active Substance: LEDIPASVIR\SOFOSBUVIR
     Dosage: HARVONI 90-400MG QD PO
     Route: 048

REACTIONS (2)
  - Therapy cessation [None]
  - Osteoarthritis [None]

NARRATIVE: CASE EVENT DATE: 20171217
